FAERS Safety Report 20701485 (Version 7)
Quarter: 2022Q4

REPORT INFORMATION
  Report Type: Spontaneous
  Country: US (occurrence: US)
  Receive Date: 20220412
  Receipt Date: 20221202
  Transmission Date: 20230112
  Serious: No
  Sender: FDA-Public Use
  Company Number: US-PFIZER INC-2020273829

PATIENT
  Age: 67 Year
  Sex: Male
  Weight: 95.25 kg

DRUGS (2)
  1. EUCRISA [Suspect]
     Active Substance: CRISABOROLE
     Indication: Psoriasis
     Dosage: APPLY TO AFFECTED AREAS TWICE DAILY AS NEEDED TO HANDS AND FEET
     Route: 061
  2. EUCRISA [Suspect]
     Active Substance: CRISABOROLE
     Dosage: APPLY TO AFFECTED AREAS TWICE A DAY AS NEEDED
     Route: 061

REACTIONS (7)
  - Drug effective for unapproved indication [Unknown]
  - Condition aggravated [Unknown]
  - Illness [Unknown]
  - Nasopharyngitis [Not Recovered/Not Resolved]
  - Sinusitis [Unknown]
  - Intentional dose omission [Unknown]
  - Off label use [Unknown]

NARRATIVE: CASE EVENT DATE: 20221101
